FAERS Safety Report 18960835 (Version 1)
Quarter: 2021Q1

REPORT INFORMATION
  Report Type: Spontaneous
  Country: FR (occurrence: FR)
  Receive Date: 20210303
  Receipt Date: 20210303
  Transmission Date: 20210420
  Serious: Yes (Other)
  Sender: FDA-Public Use
  Company Number: FR-AMGEN-FRASP2021025439

PATIENT
  Age: 65 Year
  Sex: Female
  Weight: 56 kg

DRUGS (21)
  1. SPASFON LYOC [Concomitant]
     Active Substance: PHLOROGLUCINOL
     Indication: GASTROINTESTINAL DISORDER
     Dosage: 480 MILLIGRAM, QD
     Route: 048
  2. RENUTRYL [Concomitant]
     Indication: STARVATION
     Dosage: 1 DOSAGE FORM, QD
     Route: 048
  3. ZOPICLONE [Concomitant]
     Active Substance: ZOPICLONE
     Indication: INSOMNIA
     Dosage: 7.5 MILLIGRAM, QD
     Route: 048
  4. DEXCHLORPHENIRAMINE [Suspect]
     Active Substance: DEXCHLORPHENIRAMINE
     Indication: PREMEDICATION
     Dosage: 5 MILLIGRAM
     Route: 048
     Dates: start: 20210107, end: 20210107
  5. RETINOL [Concomitant]
     Active Substance: RETINOL
     Indication: VITAMIN A DEFICIENCY
     Dosage: 50000 INTERNATIONAL UNIT
     Route: 048
  6. FUNGIZONE [Concomitant]
     Active Substance: AMPHOTERICIN B
     Indication: ORAL CANDIDIASIS
     Dosage: UNKNOWN
     Route: 048
  7. DUROGESIC [Concomitant]
     Active Substance: FENTANYL
     Indication: PAIN
     Dosage: 1 DOSAGE FORM
     Route: 048
  8. TRASTUZUMAB. [Suspect]
     Active Substance: TRASTUZUMAB
     Indication: BREAST CANCER STAGE III
     Dosage: 448 MILLIGRAM
     Route: 042
     Dates: start: 20210107, end: 20210107
  9. PAROXETINE. [Concomitant]
     Active Substance: PAROXETINE
     Indication: DEPRESSION
     Dosage: 40 MILLIGRAM, QD
     Route: 048
  10. OXYNORMORO [Concomitant]
     Active Substance: OXYCODONE HYDROCHLORIDE
     Indication: PAIN
     Dosage: 1 DOSAGE FORM, QD
     Route: 048
  11. DOLIPRANE [Concomitant]
     Active Substance: ACETAMINOPHEN
     Indication: PAIN
     Dosage: 4 GRAM, QD
     Route: 048
  12. LOPERAMIDE HCL [Concomitant]
     Active Substance: LOPERAMIDE HYDROCHLORIDE
     Indication: DIARRHOEA
     Dosage: 8 MILLIGRAM, QD
     Route: 048
  13. CREON [Concomitant]
     Active Substance: PANCRELIPASE AMYLASE\PANCRELIPASE LIPASE\PANCRELIPASE PROTEASE
     Indication: PANCREATIC FAILURE
     Dosage: 50000 INTERNATIONAL UNIT, QD
     Route: 048
  14. RANITIDINE. [Suspect]
     Active Substance: RANITIDINE
     Indication: PREMEDICATION
     Dosage: 150 MILLIGRAM
     Route: 048
     Dates: start: 20210107, end: 20210107
  15. ZOPHREN [ONDANSETRON] [Concomitant]
     Active Substance: ONDANSETRON
     Indication: NAUSEA
     Dosage: 1 DOSAGE FORM, QD
     Route: 048
  16. SMOFKABIVEN [Concomitant]
     Active Substance: AMINO ACIDS\DEXTROSE\ELECTROLYTES NOS\SOYBEAN OIL
     Indication: PARENTERAL NUTRITION
     Dosage: UNKNOWN
     Route: 048
  17. MEDROL [Suspect]
     Active Substance: METHYLPREDNISOLONE
     Indication: PREMEDICATION
     Dosage: 120 MILLIGRAM
     Route: 048
     Dates: start: 20210107, end: 20210107
  18. HYDROXYZINE [Concomitant]
     Active Substance: HYDROXYZINE HYDROCHLORIDE
     Indication: ANXIETY
     Dosage: 125 MILLIGRAM, QD
     Route: 048
  19. TAXOL [Suspect]
     Active Substance: PACLITAXEL
     Indication: BREAST CANCER STAGE III
     Dosage: 124.8 MILLIGRAM
     Route: 042
     Dates: start: 20210107, end: 20210107
  20. LANSOPRAZOLE. [Concomitant]
     Active Substance: LANSOPRAZOLE
     Indication: GASTRITIS
     Dosage: 30 MILLIGRAM, QD
     Route: 048
  21. ZYMAD [Concomitant]
     Active Substance: CHOLECALCIFEROL
     Indication: VITAMIN D DEFICIENCY
     Dosage: 1 DOSAGE FORM
     Route: 048

REACTIONS (1)
  - Mixed liver injury [Recovering/Resolving]

NARRATIVE: CASE EVENT DATE: 20210114
